FAERS Safety Report 12492906 (Version 2)
Quarter: 2016Q3

REPORT INFORMATION
  Report Type: Spontaneous
  Country: ES (occurrence: ES)
  Receive Date: 20160623
  Receipt Date: 20160714
  Transmission Date: 20161109
  Serious: Yes (Other)
  Sender: FDA-Public Use
  Company Number: ES-009507513-1606ESP009566

PATIENT
  Sex: Female
  Weight: 32 kg

DRUGS (1)
  1. AERIUS [Suspect]
     Active Substance: DESLORATADINE
     Indication: CONJUNCTIVITIS ALLERGIC
     Dosage: 5 ML, QD
     Route: 048
     Dates: start: 20160606, end: 20160606

REACTIONS (4)
  - Panic reaction [Recovered/Resolved]
  - Depressed mood [Recovered/Resolved]
  - Abnormal behaviour [Recovered/Resolved]
  - Irritability [Recovered/Resolved]

NARRATIVE: CASE EVENT DATE: 20160606
